FAERS Safety Report 25269675 (Version 1)
Quarter: 2025Q2

REPORT INFORMATION
  Report Type: Spontaneous
  Country: US (occurrence: US)
  Receive Date: 20250505
  Receipt Date: 20250505
  Transmission Date: 20250717
  Serious: No
  Sender: BAUSCH AND LOMB
  Company Number: US-BAUSCHBL-2025BNL007430

PATIENT
  Age: 72 Year
  Sex: Female

DRUGS (1)
  1. MIEBO [Suspect]
     Active Substance: PERFLUOROHEXYLOCTANE
     Indication: Dry eye
     Dosage: QID
     Route: 047
     Dates: start: 20250408, end: 20250423

REACTIONS (11)
  - Ocular hyperaemia [Unknown]
  - Hypersensitivity [Unknown]
  - Pruritus [Unknown]
  - Discomfort [Unknown]
  - Drug ineffective [Unknown]
  - Product container issue [Unknown]
  - Product complaint [Unknown]
  - Product delivery mechanism issue [Unknown]
  - Circumstance or information capable of leading to medication error [Unknown]
  - Inability to afford medication [Unknown]
  - Product packaging quantity issue [Unknown]

NARRATIVE: CASE EVENT DATE: 20250401
